FAERS Safety Report 8842230 (Version 1)
Quarter: 2012Q4

REPORT INFORMATION
  Report Type: 
  Country: US (occurrence: US)
  Receive Date: 20121016
  Receipt Date: 20121016
  Transmission Date: 20130627
  Serious: No
  Sender: FDA-Public Use
  Company Number: US-BAYER-2012-107491

PATIENT
  Sex: Female

DRUGS (2)
  1. CLIMARA PRO [Suspect]
     Indication: HOT FLUSH
     Dosage: 0.045mg/0.015mg/day
     Route: 062
  2. CLIMARA PRO [Suspect]
     Indication: MEMORY IMPAIRMENT

REACTIONS (3)
  - Menorrhagia [None]
  - Memory impairment [None]
  - Product adhesion issue [None]
